FAERS Safety Report 12597945 (Version 1)
Quarter: 2016Q3

REPORT INFORMATION
  Report Type: Spontaneous
  Country: US (occurrence: None)
  Receive Date: 20160726
  Receipt Date: 20160726
  Transmission Date: 20161109
  Serious: No
  Sender: FDA-Public Use
  Company Number: None

PATIENT
  Age: 45 Year
  Sex: Male

DRUGS (3)
  1. AFINITOR [Suspect]
     Active Substance: EVEROLIMUS
     Indication: CARCINOID TUMOUR
     Route: 048
     Dates: start: 201604, end: 20160725
  2. AFINITOR [Suspect]
     Active Substance: EVEROLIMUS
     Indication: METASTATIC NEOPLASM
     Route: 048
     Dates: start: 201604, end: 20160725
  3. AFINITOR [Suspect]
     Active Substance: EVEROLIMUS
     Indication: METASTATIC CARCINOID TUMOUR
     Route: 048
     Dates: start: 201604, end: 20160725

REACTIONS (6)
  - Vomiting [None]
  - Middle insomnia [None]
  - Fluid intake reduced [None]
  - Feeding disorder [None]
  - Nausea [None]
  - Pain [None]

NARRATIVE: CASE EVENT DATE: 20160703
